FAERS Safety Report 10282912 (Version 5)
Quarter: 2015Q1

REPORT INFORMATION
  Report Type: Spontaneous
  Country: PT (occurrence: PT)
  Receive Date: 20140708
  Receipt Date: 20150327
  Transmission Date: 20150720
  Serious: Yes (Hospitalization)
  Sender: FDA-Public Use
  Company Number: PT-BIOGENIDEC-2014BI065402

PATIENT
  Age: 33 Year
  Sex: Male

DRUGS (8)
  1. TYSABRI [Suspect]
     Active Substance: NATALIZUMAB
     Indication: MULTIPLE SCLEROSIS
     Dates: end: 201302
  2. CHOLECALCIFEROL [Concomitant]
     Active Substance: CHOLECALCIFEROL
     Indication: VITAMIN D DECREASED
     Route: 048
     Dates: start: 2014
  3. SERTRALINE [Concomitant]
     Active Substance: SERTRALINE HYDROCHLORIDE
     Route: 048
     Dates: start: 20131015, end: 201401
  4. TYSABRI [Suspect]
     Active Substance: NATALIZUMAB
     Indication: MULTIPLE SCLEROSIS
     Route: 042
     Dates: start: 201401
  5. FINGOLIMOD [Concomitant]
     Active Substance: FINGOLIMOD
  6. ZONISAMIDE. [Concomitant]
     Active Substance: ZONISAMIDE
     Route: 048
     Dates: start: 201305
  7. AMANTADINE [Concomitant]
     Active Substance: AMANTADINE
     Route: 048
     Dates: start: 20130820
  8. GABAPENTIN. [Concomitant]
     Active Substance: GABAPENTIN
     Indication: NEURALGIA
     Route: 048
     Dates: start: 2014

REACTIONS (3)
  - Gait disturbance [Recovered/Resolved]
  - Autonomic nervous system imbalance [Recovered/Resolved]
  - Back pain [Recovered/Resolved]

NARRATIVE: CASE EVENT DATE: 201405
